FAERS Safety Report 25674327 (Version 1)
Quarter: 2025Q3

REPORT INFORMATION
  Report Type: Spontaneous
  Country: EU (occurrence: EU)
  Receive Date: 20250813
  Receipt Date: 20250813
  Transmission Date: 20251021
  Serious: Yes (Other)
  Sender: BAXTER
  Company Number: EU-EMA-DD-20250801-7482707-064703

PATIENT
  Age: 13 Year
  Sex: Male

DRUGS (6)
  1. DOXORUBICIN [Suspect]
     Active Substance: DOXORUBICIN
     Indication: Malignant fibrous histiocytoma
     Route: 065
  2. IFOSFAMIDE [Suspect]
     Active Substance: IFOSFAMIDE
     Indication: Malignant fibrous histiocytoma
     Route: 065
  3. ENALAPRIL [Concomitant]
     Active Substance: ENALAPRIL
     Indication: Hypertension
     Route: 065
  4. ENOXAPARIN [Concomitant]
     Active Substance: ENOXAPARIN
     Indication: Pulmonary embolism
     Route: 065
  5. METFORMIN [Concomitant]
     Active Substance: METFORMIN HYDROCHLORIDE
     Indication: Type 2 diabetes mellitus
  6. METFORMIN [Concomitant]
     Active Substance: METFORMIN HYDROCHLORIDE
     Indication: Hepatic steatosis

REACTIONS (9)
  - Renal injury [Unknown]
  - Bronchopulmonary aspergillosis [Unknown]
  - Pyrexia [Unknown]
  - Dyspnoea [Unknown]
  - Chest pain [Unknown]
  - Pulmonary mass [Unknown]
  - Lung opacity [Unknown]
  - Pulmonary alveolar haemorrhage [Unknown]
  - Toxicity to various agents [Unknown]
